FAERS Safety Report 7769694-7 (Version None)
Quarter: 2011Q3

REPORT INFORMATION
  Report Type: 
  Country: None (occurrence: None)
  Receive Date: 20110922
  Receipt Date: 20110113
  Transmission Date: 20111222
  Serious: Yes (Hospitalization)
  Sender: FDA-Public Use
  Company Number: US-ASTRAZENECA-2011SE02420

PATIENT
  Age: 630 Month
  Sex: Female

DRUGS (4)
  1. SEROQUEL [Suspect]
     Route: 048
     Dates: start: 20040120
  2. WELLBUTRIN [Concomitant]
     Dates: start: 20040607
  3. PAXIL [Concomitant]
     Route: 048
     Dates: start: 20040120
  4. TRAZODONE HYDROCHLORIDE [Concomitant]
     Dates: start: 20040607

REACTIONS (11)
  - CARPAL TUNNEL SYNDROME [None]
  - HEADACHE [None]
  - OBESITY [None]
  - HYPERTENSION [None]
  - TYPE 2 DIABETES MELLITUS [None]
  - ARTHRITIS [None]
  - VISION BLURRED [None]
  - VOMITING [None]
  - FIBROMYALGIA [None]
  - DEPRESSION [None]
  - PARAESTHESIA [None]
